FAERS Safety Report 15900974 (Version 3)
Quarter: 2022Q2

REPORT INFORMATION
  Report Type: Spontaneous
  Country: NL (occurrence: None)
  Receive Date: 20190201
  Receipt Date: 20220421
  Transmission Date: 20220721
  Serious: Yes (Other)
  Sender: FDA-Public Use
  Company Number: 2019SE14914

PATIENT
  Sex: Male

DRUGS (34)
  1. QUETIAPINE [Suspect]
     Active Substance: QUETIAPINE
     Indication: Sleep disorder
     Route: 048
  2. QUETIAPINE [Suspect]
     Active Substance: QUETIAPINE
     Indication: Bipolar disorder
     Route: 048
  3. TRANYLCYPROMINE SULFATE [Suspect]
     Active Substance: TRANYLCYPROMINE SULFATE
     Indication: Drug ineffective
     Dosage: 30 MG, 1.5 TABLETS A DAY IN THE MORNING
     Route: 048
     Dates: start: 201810, end: 201811
  4. TRANYLCYPROMINE SULFATE [Suspect]
     Active Substance: TRANYLCYPROMINE SULFATE
     Indication: Bipolar II disorder
     Dosage: 30 MG, 1.5 TABLETS A DAY IN THE MORNING
     Route: 048
     Dates: start: 201810, end: 201811
  5. TRANYLCYPROMINE SULFATE [Suspect]
     Active Substance: TRANYLCYPROMINE SULFATE
     Indication: Drug ineffective
     Dosage: 2.5 TABLETS (50 MG) PER DAY IN THE MORNING
     Route: 048
     Dates: start: 2017, end: 2017
  6. TRANYLCYPROMINE SULFATE [Suspect]
     Active Substance: TRANYLCYPROMINE SULFATE
     Indication: Bipolar II disorder
     Dosage: 2.5 TABLETS (50 MG) PER DAY IN THE MORNING
     Route: 048
     Dates: start: 2017, end: 2017
  7. TRANYLCYPROMINE SULFATE [Suspect]
     Active Substance: TRANYLCYPROMINE SULFATE
     Indication: Drug ineffective
     Dosage: 2 TABLETS (40 MG) PER DAY IN THE MORNING
     Route: 048
     Dates: start: 2017, end: 201801
  8. TRANYLCYPROMINE SULFATE [Suspect]
     Active Substance: TRANYLCYPROMINE SULFATE
     Indication: Bipolar II disorder
     Dosage: 2 TABLETS (40 MG) PER DAY IN THE MORNING
     Route: 048
     Dates: start: 2017, end: 201801
  9. TRANYLCYPROMINE SULFATE [Suspect]
     Active Substance: TRANYLCYPROMINE SULFATE
     Indication: Drug ineffective
     Dosage: 0.5 MG TABLETS IN THE MORNING
     Route: 048
     Dates: start: 201808, end: 201809
  10. TRANYLCYPROMINE SULFATE [Suspect]
     Active Substance: TRANYLCYPROMINE SULFATE
     Indication: Bipolar II disorder
     Dosage: 0.5 MG TABLETS IN THE MORNING
     Route: 048
     Dates: start: 201808, end: 201809
  11. TRANYLCYPROMINE SULFATE [Suspect]
     Active Substance: TRANYLCYPROMINE SULFATE
     Indication: Drug ineffective
     Dosage: 2.5 TABLETS (50 MG) PER DAY IN THE MORNING
     Route: 048
     Dates: start: 2017, end: 2017
  12. TRANYLCYPROMINE SULFATE [Suspect]
     Active Substance: TRANYLCYPROMINE SULFATE
     Indication: Bipolar II disorder
     Dosage: 2.5 TABLETS (50 MG) PER DAY IN THE MORNING
     Route: 048
     Dates: start: 2017, end: 2017
  13. TRANYLCYPROMINE SULFATE [Suspect]
     Active Substance: TRANYLCYPROMINE SULFATE
     Indication: Drug ineffective
     Dosage: 2 TABLETS (40 MG) PER DAY IN THE MORNING
     Route: 048
     Dates: start: 2017, end: 2017
  14. TRANYLCYPROMINE SULFATE [Suspect]
     Active Substance: TRANYLCYPROMINE SULFATE
     Indication: Bipolar II disorder
     Dosage: 2 TABLETS (40 MG) PER DAY IN THE MORNING
     Route: 048
     Dates: start: 2017, end: 2017
  15. TRANYLCYPROMINE SULFATE [Suspect]
     Active Substance: TRANYLCYPROMINE SULFATE
     Indication: Drug ineffective
     Dosage: 20 MG, 1 TABLET PER DAY IN THE MORNING
     Route: 048
     Dates: start: 201809, end: 201810
  16. TRANYLCYPROMINE SULFATE [Suspect]
     Active Substance: TRANYLCYPROMINE SULFATE
     Indication: Bipolar II disorder
     Dosage: 20 MG, 1 TABLET PER DAY IN THE MORNING
     Route: 048
     Dates: start: 201809, end: 201810
  17. TRANYLCYPROMINE SULFATE [Suspect]
     Active Substance: TRANYLCYPROMINE SULFATE
     Indication: Drug ineffective
     Dosage: 20 MG, 2 TABLETS A DAY IN THE MORNING
     Route: 048
     Dates: start: 201811, end: 201901
  18. TRANYLCYPROMINE SULFATE [Suspect]
     Active Substance: TRANYLCYPROMINE SULFATE
     Indication: Bipolar II disorder
     Dosage: 20 MG, 2 TABLETS A DAY IN THE MORNING
     Route: 048
     Dates: start: 201811, end: 201901
  19. TRANYLCYPROMINE SULFATE [Suspect]
     Active Substance: TRANYLCYPROMINE SULFATE
     Indication: Drug ineffective
     Dosage: 1.5 TABLETS (30 MG) PER DAY IN THE MORNING
     Route: 048
     Dates: start: 2017, end: 2017
  20. TRANYLCYPROMINE SULFATE [Suspect]
     Active Substance: TRANYLCYPROMINE SULFATE
     Indication: Bipolar II disorder
     Dosage: 1.5 TABLETS (30 MG) PER DAY IN THE MORNING
     Route: 048
     Dates: start: 2017, end: 2017
  21. TRANYLCYPROMINE SULFATE [Suspect]
     Active Substance: TRANYLCYPROMINE SULFATE
     Indication: Drug ineffective
     Dosage: 3 TABLETS (60 MG) PER DAY IN THE MORNING
     Route: 048
     Dates: start: 2017, end: 2017
  22. TRANYLCYPROMINE SULFATE [Suspect]
     Active Substance: TRANYLCYPROMINE SULFATE
     Indication: Bipolar II disorder
     Dosage: 3 TABLETS (60 MG) PER DAY IN THE MORNING
     Route: 048
     Dates: start: 2017, end: 2017
  23. TRANYLCYPROMINE SULFATE [Suspect]
     Active Substance: TRANYLCYPROMINE SULFATE
     Indication: Drug ineffective
     Dosage: 1 TABLET (20 MG) PER DAY IN THE MORNING
     Route: 048
     Dates: start: 2017, end: 2017
  24. TRANYLCYPROMINE SULFATE [Suspect]
     Active Substance: TRANYLCYPROMINE SULFATE
     Indication: Bipolar II disorder
     Dosage: 1 TABLET (20 MG) PER DAY IN THE MORNING
     Route: 048
     Dates: start: 2017, end: 2017
  25. TRANYLCYPROMINE SULFATE [Suspect]
     Active Substance: TRANYLCYPROMINE SULFATE
     Indication: Drug ineffective
     Dosage: 50 MG, 2.5 TABLETS A DAY IN THE MORNING
     Route: 048
     Dates: start: 201901
  26. TRANYLCYPROMINE SULFATE [Suspect]
     Active Substance: TRANYLCYPROMINE SULFATE
     Indication: Bipolar II disorder
     Dosage: 50 MG, 2.5 TABLETS A DAY IN THE MORNING
     Route: 048
     Dates: start: 201901
  27. TRANYLCYPROMINE SULFATE [Suspect]
     Active Substance: TRANYLCYPROMINE SULFATE
     Indication: Drug ineffective
     Route: 048
     Dates: start: 201707, end: 201707
  28. TRANYLCYPROMINE SULFATE [Suspect]
     Active Substance: TRANYLCYPROMINE SULFATE
     Indication: Bipolar II disorder
     Route: 048
     Dates: start: 201707, end: 201707
  29. TRANYLCYPROMINE SULFATE [Suspect]
     Active Substance: TRANYLCYPROMINE SULFATE
     Indication: Drug ineffective
     Dosage: HALF A TABLET (10 MG) A DAY IN THE MORNING
     Route: 048
     Dates: start: 201707, end: 2017
  30. TRANYLCYPROMINE SULFATE [Suspect]
     Active Substance: TRANYLCYPROMINE SULFATE
     Indication: Bipolar II disorder
     Dosage: HALF A TABLET (10 MG) A DAY IN THE MORNING
     Route: 048
     Dates: start: 201707, end: 2017
  31. EUTHYROX [Concomitant]
     Active Substance: LEVOTHYROXINE SODIUM
     Indication: Hyperthyroidism
     Dosage: 112UG/INHAL DAILY
  32. LITHIUM [Concomitant]
     Active Substance: LITHIUM
     Indication: Mood swings
  33. LITHIUM [Concomitant]
     Active Substance: LITHIUM
     Indication: Bipolar disorder
  34. DOSTINEX [Concomitant]
     Active Substance: CABERGOLINE
     Indication: Prolactin-producing pituitary tumour

REACTIONS (12)
  - Hyperhidrosis [Not Recovered/Not Resolved]
  - Hypertensive crisis [Recovered/Resolved]
  - Chest pain [Unknown]
  - Agitation [Unknown]
  - Feeling hot [Not Recovered/Not Resolved]
  - Hypertension [Not Recovered/Not Resolved]
  - Bradycardia [Recovered/Resolved]
  - Dizziness [Unknown]
  - Palpitations [Not Recovered/Not Resolved]
  - Diet noncompliance [Unknown]
  - Contraindicated product administered [Not Recovered/Not Resolved]
  - Labelled drug-food interaction medication error [Unknown]

NARRATIVE: CASE EVENT DATE: 20170701
